FAERS Safety Report 14412206 (Version 1)
Quarter: 2018Q1

REPORT INFORMATION
  Report Type: Spontaneous
  Country: FR (occurrence: FR)
  Receive Date: 20180119
  Receipt Date: 20180119
  Transmission Date: 20180509
  Serious: Yes (Death)
  Sender: FDA-Public Use
  Company Number: FR-ASTRAZENECA-2018SE04719

PATIENT
  Age: 58 Year
  Sex: Male

DRUGS (3)
  1. ASPEGIC [Suspect]
     Active Substance: ASPIRIN DL-LYSINE
     Indication: CAROTID ANGIOPLASTY
     Route: 042
     Dates: start: 20171229
  2. LOVENOX [Suspect]
     Active Substance: ENOXAPARIN SODIUM
     Indication: AORTIC DISSECTION
     Route: 058
     Dates: start: 201712
  3. BRILIQUE [Suspect]
     Active Substance: TICAGRELOR
     Indication: CAROTID ANGIOPLASTY
     Route: 048
     Dates: start: 20171229

REACTIONS (2)
  - Cerebral haematoma [Fatal]
  - Intraventricular haemorrhage [Fatal]

NARRATIVE: CASE EVENT DATE: 20171229
